FAERS Safety Report 17840539 (Version 3)
Quarter: 2020Q2

REPORT INFORMATION
  Report Type: Spontaneous
  Country: CN (occurrence: CN)
  Receive Date: 20200529
  Receipt Date: 20200608
  Transmission Date: 20200714
  Serious: Yes (Death)
  Sender: FDA-Public Use
  Company Number: CN-ASTRAZENECA-2020SE69385

PATIENT
  Age: 70 Year
  Sex: Female

DRUGS (3)
  1. TAGRISSO [Suspect]
     Active Substance: OSIMERTINIB
     Indication: METASTASES TO BONE
     Route: 048
     Dates: start: 20200520, end: 20200524
  2. TAGRISSO [Suspect]
     Active Substance: OSIMERTINIB
     Indication: LUNG ADENOCARCINOMA
     Route: 048
     Dates: start: 20200520, end: 20200524
  3. TAGRISSO [Suspect]
     Active Substance: OSIMERTINIB
     Indication: GENE MUTATION IDENTIFICATION TEST
     Route: 048
     Dates: start: 20200520, end: 20200524

REACTIONS (3)
  - Cardiovascular disorder [Fatal]
  - Cerebrovascular disorder [Fatal]
  - Vomiting [Fatal]

NARRATIVE: CASE EVENT DATE: 20200524
